FAERS Safety Report 11107937 (Version 1)
Quarter: 2015Q2

REPORT INFORMATION
  Report Type: Spontaneous
  Country: CA (occurrence: CA)
  Receive Date: 20150512
  Receipt Date: 20150512
  Transmission Date: 20150821
  Serious: Yes (Hospitalization, Other)
  Sender: FDA-Public Use
  Company Number: CA-GILEAD-2015-0152361

PATIENT
  Age: 74 Year
  Sex: Female

DRUGS (2)
  1. HARVONI [Suspect]
     Active Substance: LEDIPASVIR\SOFOSBUVIR
     Indication: PRODUCT USED FOR UNKNOWN INDICATION
     Route: 065
  2. NADOLOL. [Concomitant]
     Active Substance: NADOLOL

REACTIONS (2)
  - Gastrointestinal haemorrhage [Unknown]
  - Haemoglobin abnormal [Unknown]
